FAERS Safety Report 8333284-8 (Version None)
Quarter: 2012Q2

REPORT INFORMATION
  Report Type: 
  Country: None (occurrence: None)
  Receive Date: 20120503
  Receipt Date: 20120425
  Transmission Date: 20120825
  Serious: Yes (Hospitalization, Other)
  Sender: FDA-Public Use
  Company Number: GB-BAYER-2012-041119

PATIENT
  Sex: Male

DRUGS (1)
  1. AVELOX [Suspect]
     Indication: TUBERCULOSIS
     Dosage: 400 MG, QD
     Dates: start: 20120201

REACTIONS (1)
  - AUTONOMIC NEUROPATHY [None]
